FAERS Safety Report 10026451 (Version 2)
Quarter: 2014Q2

REPORT INFORMATION
  Report Type: Spontaneous
  Country: JP (occurrence: JP)
  Receive Date: 20140321
  Receipt Date: 20140404
  Transmission Date: 20141212
  Serious: Yes (Hospitalization, Other)
  Sender: FDA-Public Use
  Company Number: JP-MERCK-1403JPN009423

PATIENT
  Age: 71 Year
  Sex: Female

DRUGS (7)
  1. EMEND [Suspect]
     Indication: PROPHYLAXIS OF NAUSEA AND VOMITING
     Dosage: 125 MG, QD
     Route: 048
     Dates: start: 20140307, end: 201403
  2. EMEND [Suspect]
     Indication: PROPHYLAXIS OF NAUSEA AND VOMITING
     Dosage: 80 MG, QD
     Route: 048
     Dates: start: 201403, end: 20140311
  3. DEXAMETHASONE SODIUM PHOSPHATE [Suspect]
     Indication: PROPHYLAXIS OF NAUSEA AND VOMITING
     Dosage: UNK
     Route: 042
  4. GRANISETRON HYDROCHLORIDE [Suspect]
     Indication: PROPHYLAXIS OF NAUSEA AND VOMITING
     Route: 042
  5. CISPLATIN [Suspect]
     Dosage: UNK
     Route: 042
     Dates: start: 20140307
  6. NAVELBINE [Concomitant]
     Dosage: UNK
     Dates: start: 20140307
  7. IRBETAN [Concomitant]

REACTIONS (1)
  - Hepatic function abnormal [Recovering/Resolving]
